FAERS Safety Report 9022400 (Version 3)
Quarter: 2014Q4

REPORT INFORMATION
  Report Type: Report from Study
  Country: CA (occurrence: CA)
  Receive Date: 20130118
  Receipt Date: 20141008
  Transmission Date: 20150529
  Serious: Yes (Other)
  Sender: FDA-Public Use
  Company Number: PHHY2012CA122831

PATIENT
  Age: 58 Year
  Sex: Male

DRUGS (3)
  1. GLEEVEC [Suspect]
     Active Substance: IMATINIB MESYLATE
     Indication: GASTROINTESTINAL STROMAL TUMOUR
     Dosage: 200 MG, TID
     Route: 048
     Dates: start: 2001
  2. GLEEVEC [Suspect]
     Active Substance: IMATINIB MESYLATE
     Dosage: 400 MG, DAILY
     Route: 048
     Dates: start: 2002
  3. GLEEVEC [Suspect]
     Active Substance: IMATINIB MESYLATE
     Dosage: 600 MG, DAILY
     Route: 048

REACTIONS (10)
  - Arthralgia [Unknown]
  - Muscle spasms [Unknown]
  - Metastases to liver [Unknown]
  - Eye irritation [Unknown]
  - Periorbital oedema [Unknown]
  - Nocturia [Unknown]
  - Cystitis interstitial [Unknown]
  - Dysuria [Unknown]
  - Gastrointestinal stromal tumour [Unknown]
  - Malignant neoplasm progression [Unknown]

NARRATIVE: CASE EVENT DATE: 200202
